FAERS Safety Report 9473310 (Version 2)
Quarter: 2014Q4

REPORT INFORMATION
  Report Type: Spontaneous
  Country: US (occurrence: US)
  Receive Date: 20130823
  Receipt Date: 20141205
  Transmission Date: 20150529
  Serious: Yes (Other)
  Sender: FDA-Public Use
  Company Number: US-BRISTOL-MYERS SQUIBB COMPANY-18875955

PATIENT
  Age: 66 Year
  Sex: Female

DRUGS (1)
  1. SPRYCEL [Suspect]
     Active Substance: DASATINIB
     Indication: ACUTE LYMPHOCYTIC LEUKAEMIA
     Dosage: TABS?LOT#3K77035B3
     Route: 048
     Dates: start: 20121220

REACTIONS (4)
  - Temperature intolerance [Unknown]
  - Cough [Unknown]
  - Pericardial effusion [Unknown]
  - Pleural effusion [Recovering/Resolving]
